FAERS Safety Report 13129390 (Version 1)
Quarter: 2017Q1

REPORT INFORMATION
  Report Type: Spontaneous
  Country: US (occurrence: US)
  Receive Date: 20170118
  Receipt Date: 20170118
  Transmission Date: 20170428
  Serious: Yes (Other)
  Sender: FDA-Public Use
  Company Number: None

PATIENT
  Age: 49 Year
  Sex: Female
  Weight: 90.8 kg

DRUGS (1)
  1. DOXYCYCLINE 100MG 2 X A DAY [Suspect]
     Active Substance: DOXYCYCLINE
     Indication: ROSACEA
     Route: 048
     Dates: start: 20161018, end: 20161028

REACTIONS (3)
  - Visual impairment [None]
  - Headache [None]
  - Hypoacusis [None]

NARRATIVE: CASE EVENT DATE: 20161018
